FAERS Safety Report 11867191 (Version 1)
Quarter: 2015Q4

REPORT INFORMATION
  Report Type: Spontaneous
  Country: FR (occurrence: FR)
  Receive Date: 20151224
  Receipt Date: 20151224
  Transmission Date: 20160305
  Serious: Yes (Death, Hospitalization)
  Sender: FDA-Public Use
  Company Number: FR-JNJFOC-20151215498

PATIENT
  Age: 85 Year
  Sex: Male

DRUGS (13)
  1. SEROPLEX [Suspect]
     Active Substance: ESCITALOPRAM OXALATE
     Indication: PRODUCT USED FOR UNKNOWN INDICATION
     Route: 048
     Dates: start: 20151021
  2. PARACETAMOL [Concomitant]
     Active Substance: ACETAMINOPHEN
  3. PERINDOPRIL [Concomitant]
     Active Substance: PERINDOPRIL
     Route: 065
  4. INEXIUM [Concomitant]
     Active Substance: ESOMEPRAZOLE
     Route: 065
  5. TRAMADOL. [Suspect]
     Active Substance: TRAMADOL
     Indication: PAIN
     Route: 065
     Dates: start: 201509, end: 20151021
  6. MACROGOL 3350 [Concomitant]
     Active Substance: POLYETHYLENE GLYCOL 3350
     Route: 065
  7. SEROPLEX [Suspect]
     Active Substance: ESCITALOPRAM OXALATE
     Indication: PRODUCT USED FOR UNKNOWN INDICATION
     Route: 048
     Dates: start: 201509, end: 20151021
  8. KARDEGIC [Concomitant]
     Active Substance: ASPIRIN LYSINE
     Route: 065
  9. TAHOR [Concomitant]
     Active Substance: ATORVASTATIN CALCIUM
     Route: 065
  10. BISOPROLOL [Concomitant]
     Active Substance: BISOPROLOL
     Route: 065
  11. SEROPLEX [Suspect]
     Active Substance: ESCITALOPRAM OXALATE
     Indication: PRODUCT USED FOR UNKNOWN INDICATION
     Route: 048
     Dates: start: 201509, end: 201509
  12. RISPERDAL [Suspect]
     Active Substance: RISPERIDONE
     Indication: PRODUCT USED FOR UNKNOWN INDICATION
     Route: 048
     Dates: start: 201502
  13. SERESTA [Concomitant]
     Active Substance: OXAZEPAM
     Dosage: A HALF TABLET A DAY.
     Route: 065

REACTIONS (1)
  - Serotonin syndrome [Fatal]

NARRATIVE: CASE EVENT DATE: 201510
